FAERS Safety Report 8807025 (Version 2)
Quarter: 2012Q4

REPORT INFORMATION
  Report Type: 
  Country: US (occurrence: US)
  Receive Date: 20120925
  Receipt Date: 20121109
  Transmission Date: 20130627
  Serious: Yes (Death, Other)
  Sender: FDA-Public Use
  Company Number: US-ROCHE-1104072

PATIENT
  Sex: Female

DRUGS (10)
  1. AVASTIN [Suspect]
     Indication: BREAST CANCER FEMALE
     Route: 065
  2. AVASTIN [Suspect]
     Indication: HAEMATOLOGICAL MALIGNANCY
  3. TAMOXIFEN [Concomitant]
  4. ARIMIDEX [Concomitant]
  5. TAXOTERE [Concomitant]
  6. HERCEPTIN [Concomitant]
  7. CARBOPLATIN [Concomitant]
  8. NAVELBINE [Concomitant]
  9. GEMCITABINE [Concomitant]
  10. TAXOL [Concomitant]

REACTIONS (2)
  - Disease progression [Unknown]
  - Death [Fatal]
